FAERS Safety Report 9398367 (Version 1)
Quarter: 2013Q3

REPORT INFORMATION
  Report Type: Spontaneous
  Country: GB (occurrence: GB)
  Receive Date: 20130712
  Receipt Date: 20130712
  Transmission Date: 20140515
  Serious: Yes (Other)
  Sender: FDA-Public Use
  Company Number: GB-WATSON-2013-12231

PATIENT
  Age: 31 Year
  Sex: Female

DRUGS (1)
  1. CITALOPRAM HYDROBROMIDE (UNKNOWN) [Suspect]
     Indication: DEPRESSED MOOD
     Dosage: 20 MG, DAILY
     Route: 065

REACTIONS (1)
  - Epistaxis [Unknown]
